FAERS Safety Report 24206482 (Version 1)
Quarter: 2024Q3

REPORT INFORMATION
  Report Type: Report from Study
  Country: FR (occurrence: None)
  Receive Date: 20240813
  Receipt Date: 20240813
  Transmission Date: 20241017
  Serious: Yes (Other)
  Sender: ASTRAZENECA
  Company Number: 2024A074732

PATIENT
  Sex: Male
  Weight: 63 kg

DRUGS (3)
  1. IMFINZI [Suspect]
     Active Substance: DURVALUMAB
     Indication: HER2 positive biliary tract cancer
     Route: 042
     Dates: start: 20240226, end: 20240704
  2. BEVACIZUMAB/GEMCITABINE/CARBOPLATIN [Concomitant]
     Route: 042
     Dates: start: 20240226
  3. CISPLATIN [Concomitant]
     Active Substance: CISPLATIN
     Dates: start: 20240226

REACTIONS (5)
  - Thrombocytopenia [Unknown]
  - Haematotoxicity [Unknown]
  - Decubitus ulcer [Recovered/Resolved]
  - Abdominal pain upper [Recovered/Resolved]
  - Off label use [Unknown]
